FAERS Safety Report 7832268-3 (Version None)
Quarter: 2011Q4

REPORT INFORMATION
  Report Type: 
  Country: None (occurrence: None)
  Receive Date: 20111022
  Receipt Date: 20111005
  Transmission Date: 20120403
  Serious: Yes (Other)
  Sender: FDA-Public Use
  Company Number: US-BAYER-2011-055315

PATIENT
  Age: 49 Year
  Sex: Female
  Weight: 43.084 kg

DRUGS (6)
  1. DROSPIRENONE AND ETHINYL ESTRADIOL [Suspect]
     Indication: ORAL CONTRACEPTION
     Dosage: UNK
     Dates: start: 20090101, end: 20100101
  2. LISINOPRIL [Concomitant]
  3. FOSAMAX [Concomitant]
  4. YASMIN [Suspect]
     Indication: MOOD ALTERED
  5. YASMIN [Suspect]
     Indication: ORAL CONTRACEPTION
     Dosage: UNK
     Dates: start: 20090101, end: 20100101
  6. PRILOSEC [Concomitant]

REACTIONS (4)
  - GALLBLADDER DISORDER [None]
  - INJURY [None]
  - CHOLELITHIASIS [None]
  - PAIN [None]
